FAERS Safety Report 12366092 (Version 3)
Quarter: 2016Q2

REPORT INFORMATION
  Report Type: Report from Study
  Country: JP (occurrence: JP)
  Receive Date: 20160513
  Receipt Date: 20160525
  Transmission Date: 20160815
  Serious: Yes (Hospitalization)
  Sender: FDA-Public Use
  Company Number: JP-B.I. PHARMACEUTICALS,INC./RIDGEFIELD-2016-BI-29513II

PATIENT
  Age: 62 Year
  Sex: Male
  Weight: 56 kg

DRUGS (12)
  1. BIBF 1120 [Suspect]
     Active Substance: NINTEDANIB
     Indication: COLORECTAL CANCER
     Dosage: 400 MG
     Route: 065
     Dates: start: 20151127, end: 20160505
  2. LAC-B N [Concomitant]
     Indication: DIARRHOEA
     Dosage: 3 G
     Route: 048
     Dates: start: 20151217
  3. BLOPRESS [Concomitant]
     Active Substance: CANDESARTAN CILEXETIL
     Indication: HYPERTENSION
     Dosage: 8 MG
     Route: 048
     Dates: start: 20100702
  4. LOPERAMIDE HYDROCHLORIDE. [Concomitant]
     Active Substance: LOPERAMIDE HYDROCHLORIDE
     Indication: DIARRHOEA
     Dosage: 2 MG
     Route: 048
     Dates: start: 20131023
  5. LONSURF [Suspect]
     Active Substance: TIPIRACIL HYDROCHLORIDE\TRIFLURIDINE
     Indication: COLORECTAL CANCER
     Dosage: 100 MG
     Route: 048
     Dates: start: 20160222, end: 20160429
  6. DOGMATYL [Concomitant]
     Active Substance: SULPIRIDE
     Indication: DECREASED APPETITE
     Dosage: 100 MG
     Route: 048
     Dates: start: 20160104
  7. ASPARA POTASSIUM [Concomitant]
     Active Substance: POTASSIUM ASPARTATE
     Indication: HYPOKALAEMIA
     Dosage: 1800 MG
     Route: 048
     Dates: start: 20151217
  8. AMLODIPINE [Concomitant]
     Active Substance: AMLODIPINE BESYLATE
     Indication: HYPERTENSION
     Dosage: 5 MG
     Route: 048
     Dates: start: 20100723
  9. URSODEOXYCHOLIC ACID [Concomitant]
     Active Substance: URSODIOL
     Indication: HEPATIC ENZYME INCREASED
     Dosage: 600 MG
     Route: 048
     Dates: start: 20110204
  10. RABEPRAZOLE NA [Concomitant]
     Active Substance: RABEPRAZOLE SODIUM
     Indication: PROPHYLAXIS AGAINST GASTROINTESTINAL ULCER
     Dosage: 20 MG
     Route: 048
     Dates: start: 20140618
  11. HIRUDOID [Concomitant]
     Active Substance: GLYCOSAMINOGLYCANS
     Indication: DERMATITIS ACNEIFORM
     Dosage: FORMULATION :LOTION
     Route: 065
     Dates: start: 20140514
  12. FLIVAS [Concomitant]
     Active Substance: NAFTOPIDIL
     Indication: PROSTATITIS
     Dosage: 50 MG
     Route: 048
     Dates: start: 20160223

REACTIONS (3)
  - Anaemia [Not Recovered/Not Resolved]
  - Ileal ulcer [Not Recovered/Not Resolved]
  - Small intestinal haemorrhage [Not Recovered/Not Resolved]

NARRATIVE: CASE EVENT DATE: 20160506
